FAERS Safety Report 4457968-7 (Version None)
Quarter: 2004Q3

REPORT INFORMATION
  Report Type: 
  Country: None (occurrence: None)
  Receive Date: 20040922
  Receipt Date: 20040909
  Transmission Date: 20050211
  Serious: Yes (Hospitalization)
  Sender: FDA-Public Use
  Company Number: 04P-087-0273248-00

PATIENT
  Age: 50 Year
  Sex: Male

DRUGS (4)
  1. KALETRA [Suspect]
     Indication: HIV INFECTION
     Dosage: 6 CAPSULE, 1 IN 1 D, PER ORAL
     Route: 048
     Dates: start: 20030401
  2. DIDANOSINE [Concomitant]
  3. STAVUDINE [Concomitant]
  4. PENTAMIDINE ISETHIONATE [Concomitant]

REACTIONS (1)
  - HERPES ZOSTER [None]
